FAERS Safety Report 25119370 (Version 2)
Quarter: 2025Q2

REPORT INFORMATION
  Report Type: Spontaneous
  Country: DE (occurrence: DE)
  Receive Date: 20250325
  Receipt Date: 20250528
  Transmission Date: 20250716
  Serious: Yes (Other)
  Sender: NOVARTIS
  Company Number: DE-002147023-NVSC2025DE048256

PATIENT
  Age: 35 Year
  Sex: Female
  Weight: 80 kg

DRUGS (2)
  1. KESIMPTA [Suspect]
     Active Substance: OFATUMUMAB
     Indication: Multiple sclerosis
     Dosage: UNK, QMO
     Route: 058
     Dates: start: 20220901, end: 20250312
  2. LEVOTHYROXINE SODIUM [Concomitant]
     Active Substance: LEVOTHYROXINE SODIUM
     Indication: Product used for unknown indication
     Route: 065

REACTIONS (1)
  - Thyroid cancer [Unknown]

NARRATIVE: CASE EVENT DATE: 20250301
